FAERS Safety Report 17406429 (Version 1)
Quarter: 2020Q1

REPORT INFORMATION
  Report Type: Spontaneous
  Country: US (occurrence: US)
  Receive Date: 20200127
  Receipt Date: 20200127
  Transmission Date: 20200409
  Serious: Yes (Life-Threatening, Hospitalization, Disabling, Other)
  Sender: FDA-Public Use
  Company Number: None

PATIENT
  Age: 51 Year
  Sex: Female
  Weight: 47.63 kg

DRUGS (10)
  1. ESTRATEST [Concomitant]
     Active Substance: ESTROGENS, ESTERIFIED\METHYLTESTOSTERONE
  2. PRILOSEC [Concomitant]
     Active Substance: OMEPRAZOLE MAGNESIUM
  3. GABAPENTIN. [Concomitant]
     Active Substance: GABAPENTIN
  4. CALCIUM [Concomitant]
     Active Substance: CALCIUM
  5. TUMERIC [Concomitant]
     Active Substance: HERBALS\TURMERIC
  6. OXCARBAZAPINE [Concomitant]
     Active Substance: OXCARBAZEPINE
  7. LOSARTIN [Concomitant]
     Active Substance: LOSARTAN
  8. HUMIRA [Suspect]
     Active Substance: ADALIMUMAB
     Indication: OSTEOARTHRITIS
     Dates: start: 201911, end: 20191206
  9. HUMIRA [Suspect]
     Active Substance: ADALIMUMAB
     Indication: PSORIASIS
  10. MULTI [Concomitant]

REACTIONS (15)
  - Pyrexia [None]
  - Chills [None]
  - Vomiting [None]
  - Back pain [None]
  - Economic problem [None]
  - Chest pain [None]
  - Psoriasis [None]
  - Impaired work ability [None]
  - Swelling face [None]
  - Pain in extremity [None]
  - Chromaturia [None]
  - Myalgia [None]
  - Musculoskeletal pain [None]
  - Dehydration [None]
  - Gastritis viral [None]

NARRATIVE: CASE EVENT DATE: 20191107
